FAERS Safety Report 6958350-0 (Version None)
Quarter: 2010Q3

REPORT INFORMATION
  Report Type: 
  Country: None (occurrence: None)
  Receive Date: 20100831
  Receipt Date: 20100823
  Transmission Date: 20110219
  Serious: Yes (Hospitalization)
  Sender: FDA-Public Use
  Company Number: US-JNJFOC-20100704582

PATIENT
  Sex: Female

DRUGS (8)
  1. REMICADE [Suspect]
     Indication: ANKYLOSING SPONDYLITIS
     Route: 042
  2. REMICADE [Suspect]
     Route: 042
  3. REMICADE [Suspect]
     Indication: CROHN'S DISEASE
     Route: 042
  4. REMICADE [Suspect]
     Route: 042
  5. XANAX [Concomitant]
  6. PERCOCET [Concomitant]
     Indication: PAIN
  7. ANTI-DEPRESSANT [Concomitant]
  8. VALIUM [Concomitant]
     Indication: SLEEP DISORDER THERAPY

REACTIONS (7)
  - ARTHRITIS [None]
  - CYTOMEGALOVIRUS TEST POSITIVE [None]
  - DISEASE RECURRENCE [None]
  - ESCHERICHIA INFECTION [None]
  - FATIGUE [None]
  - LYMPHADENOPATHY [None]
  - PERIRECTAL ABSCESS [None]
